FAERS Safety Report 18451881 (Version 1)
Quarter: 2020Q4

REPORT INFORMATION
  Report Type: Spontaneous
  Country: US (occurrence: US)
  Receive Date: 20201102
  Receipt Date: 20201102
  Transmission Date: 20210114
  Serious: No
  Sender: FDA-Public Use
  Company Number: US-SA-2020SA305092

PATIENT

DRUGS (2)
  1. DUPIXENT [Suspect]
     Active Substance: DUPILUMAB
     Dosage: UNK UNK, 1X
  2. DUPIXENT [Suspect]
     Active Substance: DUPILUMAB
     Dosage: UNK
     Dates: end: 20201001

REACTIONS (6)
  - Cough [Unknown]
  - Injection site reaction [Unknown]
  - Skin candida [Unknown]
  - Pyrexia [Unknown]
  - Illness [Unknown]
  - Oral herpes [Unknown]
